FAERS Safety Report 25758127 (Version 1)
Quarter: 2025Q3

REPORT INFORMATION
  Report Type: Spontaneous
  Country: CN (occurrence: CN)
  Receive Date: 20250903
  Receipt Date: 20250903
  Transmission Date: 20251020
  Serious: Yes (Other)
  Sender: BEIGENE
  Company Number: CN-BEIGENE-BGN-2025-014615

PATIENT
  Age: 68 Year
  Weight: 64 kg

DRUGS (16)
  1. TISLELIZUMAB [Suspect]
     Active Substance: TISLELIZUMAB
     Indication: Tongue neoplasm malignant stage unspecified
  2. TISLELIZUMAB [Suspect]
     Active Substance: TISLELIZUMAB
     Route: 041
  3. TISLELIZUMAB [Suspect]
     Active Substance: TISLELIZUMAB
     Route: 041
  4. TISLELIZUMAB [Suspect]
     Active Substance: TISLELIZUMAB
  5. PACLITAXEL [Concomitant]
     Active Substance: PACLITAXEL
     Indication: Tongue neoplasm malignant stage unspecified
  6. PACLITAXEL [Concomitant]
     Active Substance: PACLITAXEL
     Route: 041
  7. PACLITAXEL [Concomitant]
     Active Substance: PACLITAXEL
     Route: 041
  8. PACLITAXEL [Concomitant]
     Active Substance: PACLITAXEL
  9. ERBITUX [Concomitant]
     Active Substance: CETUXIMAB
     Indication: Tongue neoplasm malignant stage unspecified
  10. ERBITUX [Concomitant]
     Active Substance: CETUXIMAB
     Route: 041
  11. ERBITUX [Concomitant]
     Active Substance: CETUXIMAB
     Route: 041
  12. ERBITUX [Concomitant]
     Active Substance: CETUXIMAB
  13. CISPLATIN [Concomitant]
     Active Substance: CISPLATIN
     Indication: Tongue neoplasm malignant stage unspecified
  14. CISPLATIN [Concomitant]
     Active Substance: CISPLATIN
     Route: 041
  15. CISPLATIN [Concomitant]
     Active Substance: CISPLATIN
     Route: 041
  16. CISPLATIN [Concomitant]
     Active Substance: CISPLATIN

REACTIONS (1)
  - Agranulocytosis [Recovering/Resolving]
